FAERS Safety Report 5578678-9 (Version None)
Quarter: 2007Q4

REPORT INFORMATION
  Report Type: 
  Country: None (occurrence: None)
  Receive Date: 20071227
  Receipt Date: 20071227
  Transmission Date: 20080405
  Serious: Yes (Other)
  Sender: FDA-Public Use
  Company Number: None

PATIENT
  Age: 73 Year
  Sex: Male
  Weight: 55.7924 kg

DRUGS (2)
  1. CLINIMIX 2.75/10 SULFITE FREE IN DEXTROSE 10% [Suspect]
     Indication: NUTRITIONAL SUPPORT
     Dosage: 1215 ML DAILY IV
     Route: 042
     Dates: start: 20071127, end: 20071205
  2. LIPOSYN II 20% [Suspect]

REACTIONS (3)
  - BLISTER [None]
  - INFUSION SITE EXTRAVASATION [None]
  - OEDEMA PERIPHERAL [None]
